FAERS Safety Report 13379252 (Version 1)
Quarter: 2017Q1

REPORT INFORMATION
  Report Type: Spontaneous
  Country: US (occurrence: US)
  Receive Date: 20170328
  Receipt Date: 20170328
  Transmission Date: 20170429
  Serious: No
  Sender: FDA-Public Use
  Company Number: US-ROCHE-1062204

PATIENT
  Age: 65 Year
  Sex: Female

DRUGS (5)
  1. ZYFLO [Concomitant]
     Active Substance: ZILEUTON
     Dosage: LAST DOSE PRIOR TO SAE ON 18/APR/2012
     Route: 065
  2. CIPRO [Concomitant]
     Active Substance: CIPROFLOXACIN HYDROCHLORIDE
  3. FLAGYL [Concomitant]
     Active Substance: METRONIDAZOLE\METRONIDAZOLE HYDROCHLORIDE
  4. ADVIL [Concomitant]
     Active Substance: IBUPROFEN
  5. XOLAIR [Suspect]
     Active Substance: OMALIZUMAB
     Indication: PRODUCT USED FOR UNKNOWN INDICATION
     Route: 065
     Dates: start: 20120419

REACTIONS (3)
  - Dizziness [Unknown]
  - Sinusitis [Unknown]
  - Headache [Unknown]

NARRATIVE: CASE EVENT DATE: 20120419
